FAERS Safety Report 10450468 (Version 2)
Quarter: 2014Q3

REPORT INFORMATION
  Report Type: Spontaneous
  Country: US (occurrence: US)
  Receive Date: 20140912
  Receipt Date: 20140912
  Transmission Date: 20150326
  Serious: Yes (Death, Hospitalization)
  Sender: FDA-Public Use
  Company Number: US-GLAXOSMITHKLINE-A0865376A

PATIENT
  Sex: Female

DRUGS (1)
  1. AVANDIA [Suspect]
     Active Substance: ROSIGLITAZONE MALEATE
     Indication: TYPE 2 DIABETES MELLITUS
     Dosage: 8MG PER DAY
     Route: 048
     Dates: start: 200108, end: 200208

REACTIONS (10)
  - Metabolic acidosis [Unknown]
  - Cerebrovascular accident [Fatal]
  - Cardiac arrest [Fatal]
  - Bradycardia [Unknown]
  - Heart rate decreased [Unknown]
  - Pleural effusion [Unknown]
  - Adenocarcinoma of colon [Fatal]
  - Sick sinus syndrome [Unknown]
  - Atrioventricular block [Unknown]
  - Atrioventricular block complete [Unknown]
